FAERS Safety Report 24210018 (Version 1)
Quarter: 2024Q3

REPORT INFORMATION
  Report Type: Spontaneous
  Country: US (occurrence: US)
  Receive Date: 20240814
  Receipt Date: 20240814
  Transmission Date: 20241017
  Serious: Yes (Hospitalization)
  Sender: SANDOZ
  Company Number: US-SANDOZ-SDZ2024US064429

PATIENT
  Sex: Female

DRUGS (2)
  1. GENTAMICIN SULFATE [Suspect]
     Active Substance: GENTAMICIN SULFATE
     Indication: Product used for unknown indication
     Dosage: 2 DROP, QD
     Route: 047
     Dates: start: 202212
  2. GENTAMICIN SULFATE [Suspect]
     Active Substance: GENTAMICIN SULFATE
     Dosage: 1 DROP 2X DAY
     Route: 065
     Dates: start: 20240412

REACTIONS (13)
  - Swelling face [Not Recovered/Not Resolved]
  - Eye haematoma [Not Recovered/Not Resolved]
  - Eye pain [Not Recovered/Not Resolved]
  - Eye swelling [Not Recovered/Not Resolved]
  - Eye infection [Unknown]
  - Memory impairment [Unknown]
  - Oral pain [Unknown]
  - Tooth loss [Unknown]
  - Insomnia [Unknown]
  - Limb discomfort [Unknown]
  - Discomfort [Unknown]
  - Tooth disorder [Unknown]
  - Product quality issue [Unknown]

NARRATIVE: CASE EVENT DATE: 20240412
